FAERS Safety Report 11467843 (Version 1)
Quarter: 2015Q3

REPORT INFORMATION
  Report Type: Spontaneous
  Country: US (occurrence: None)
  Receive Date: 20150904
  Receipt Date: 20150904
  Transmission Date: 20151125
  Serious: Yes (Other)
  Sender: FDA-Public Use
  Company Number: None

PATIENT
  Sex: Male

DRUGS (1)
  1. SUTENT [Suspect]
     Active Substance: SUNITINIB MALATE
     Indication: PRODUCT USED FOR UNKNOWN INDICATION
     Dosage: 1 CAP QD X 4 WEEKS ON AND 2 WEEKS OFF
     Route: 048
     Dates: start: 20150811

REACTIONS (4)
  - Nausea [None]
  - Pain [None]
  - Vomiting [None]
  - Constipation [None]
